FAERS Safety Report 25287882 (Version 1)
Quarter: 2025Q2

REPORT INFORMATION
  Report Type: Report from Study
  Country: CA (occurrence: CA)
  Receive Date: 20250509
  Receipt Date: 20250509
  Transmission Date: 20250716
  Serious: Yes (Other)
  Sender: BIOCON
  Company Number: CA-MIMS-BCONMC-12905

PATIENT

DRUGS (3)
  1. HULIO [Suspect]
     Active Substance: ADALIMUMAB-FKJP
     Indication: Product used for unknown indication
     Route: 058
     Dates: start: 20211101
  2. HULIO [Suspect]
     Active Substance: ADALIMUMAB-FKJP
     Route: 058
     Dates: start: 20211101
  3. VITAMINS NOS [Concomitant]
     Active Substance: VITAMINS
     Indication: Product used for unknown indication
     Dosage: 2000 INTERNATIONAL UNIT, QD
     Route: 065

REACTIONS (10)
  - Rectal ulcer [Unknown]
  - Haematochezia [Unknown]
  - Anal incontinence [Unknown]
  - Rectal tenesmus [Unknown]
  - Brain fog [Unknown]
  - Anal fissure [Unknown]
  - Impaired quality of life [Unknown]
  - General physical health deterioration [Unknown]
  - Diarrhoea [Unknown]
  - Fatigue [Unknown]
